FAERS Safety Report 19359514 (Version 2)
Quarter: 2021Q4

REPORT INFORMATION
  Report Type: Spontaneous
  Country: US (occurrence: US)
  Receive Date: 20210602
  Receipt Date: 20211230
  Transmission Date: 20220303
  Serious: No
  Sender: FDA-Public Use
  Company Number: US-PFIZER INC-2021556393

PATIENT

DRUGS (1)
  1. BUPIVACAINE HYDROCHLORIDE [Suspect]
     Active Substance: BUPIVACAINE HYDROCHLORIDE
     Dosage: UNK (DOSE/DOSAGE FORM: BUPIVACAINE 0.5%  150 MG/30 ML   5 MG/ML)

REACTIONS (1)
  - Therapeutic product effect incomplete [Unknown]
